FAERS Safety Report 9388966 (Version 1)
Quarter: 2013Q3

REPORT INFORMATION
  Report Type: Spontaneous
  Country: NL (occurrence: NL)
  Receive Date: 20130708
  Receipt Date: 20130708
  Transmission Date: 20140515
  Serious: Yes (Hospitalization)
  Sender: FDA-Public Use
  Company Number: NL-WATSON-2013-11855

PATIENT
  Age: 21 Year
  Sex: Female

DRUGS (1)
  1. MINOCYCLINE (UNKNOWN) [Suspect]
     Indication: FOLLICULITIS
     Dosage: 100 MG, DAILY
     Route: 048
     Dates: start: 20130502

REACTIONS (3)
  - Syncope [Not Recovered/Not Resolved]
  - Dizziness [Not Recovered/Not Resolved]
  - Tinnitus [Not Recovered/Not Resolved]
